FAERS Safety Report 4277131-2 (Version None)
Quarter: 2004Q1

REPORT INFORMATION
  Report Type: 
  Country: None (occurrence: None)
  Receive Date: 20040120
  Receipt Date: 19971213
  Transmission Date: 20041129
  Serious: No
  Sender: FDA-Public Use
  Company Number: 7165

PATIENT
  Sex: Male

DRUGS (1)
  1. METHOTREXATE [Suspect]

REACTIONS (3)
  - HAEMATURIA [None]
  - NEPHRITIS INTERSTITIAL [None]
  - PROTEINURIA [None]
